FAERS Safety Report 5909517-1 (Version None)
Quarter: 2008Q4

REPORT INFORMATION
  Report Type: 
  Country: None (occurrence: None)
  Receive Date: 20081002
  Receipt Date: 20080926
  Transmission Date: 20090506
  Serious: Yes (Hospitalization, Other)
  Sender: FDA-Public Use
  Company Number: 2007SP007549

PATIENT
  Age: 39 Year
  Sex: Male
  Weight: 100 kg

DRUGS (3)
  1. DESLORATADINE [Suspect]
     Indication: RHINITIS ALLERGIC
     Dosage: 5 MG;ONCE
     Dates: start: 20070414, end: 20070414
  2. NASACORT [Concomitant]
  3. BECOTIDE [Concomitant]

REACTIONS (13)
  - ANTEROGRADE AMNESIA [None]
  - DERMABRASION [None]
  - FACE INJURY [None]
  - FALL [None]
  - FATIGUE [None]
  - HAEMORRHAGE [None]
  - HEAD INJURY [None]
  - LOSS OF CONSCIOUSNESS [None]
  - LUNG INFECTION [None]
  - MALAISE [None]
  - TOOTH FRACTURE [None]
  - VENTILATION/PERFUSION SCAN ABNORMAL [None]
  - WOUND [None]
